FAERS Safety Report 24000654 (Version 1)
Quarter: 2024Q2

REPORT INFORMATION
  Report Type: Spontaneous
  Country: US (occurrence: None)
  Receive Date: 20240621
  Receipt Date: 20240621
  Transmission Date: 20240715
  Serious: Yes (Death)
  Sender: FDA-Public Use
  Company Number: None

PATIENT
  Age: 77 Year
  Sex: Male

DRUGS (4)
  1. MYFORTIC [Suspect]
     Active Substance: MYCOPHENOLATE SODIUM
     Indication: Organ transplant
     Dosage: FREQUENCY : TWICE A DAY;?
     Route: 048
     Dates: start: 20200218, end: 202405
  2. PANTOPRAZOLE [Concomitant]
     Active Substance: PANTOPRAZOLE
  3. TACROLIMUS [Concomitant]
     Active Substance: TACROLIMUS
  4. DEVICE [Concomitant]
     Active Substance: DEVICE

REACTIONS (4)
  - Pulmonary oedema [None]
  - Ejection fraction decreased [None]
  - Hypoxia [None]
  - Aspiration [None]

NARRATIVE: CASE EVENT DATE: 20240501
